FAERS Safety Report 18799983 (Version 1)
Quarter: 2021Q1

REPORT INFORMATION
  Report Type: Spontaneous
  Country: US (occurrence: US)
  Receive Date: 20210128
  Receipt Date: 20210128
  Transmission Date: 20210419
  Serious: Yes (Other)
  Sender: FDA-Public Use
  Company Number: None

PATIENT
  Age: 56 Year
  Sex: Female
  Weight: 113.67 kg

DRUGS (17)
  1. BENADRYL [Concomitant]
     Active Substance: DIPHENHYDRAMINE HYDROCHLORIDE
  2. PIQRAY [Suspect]
     Active Substance: ALPELISIB
     Indication: BREAST CANCER
     Route: 048
     Dates: start: 20210121, end: 20210128
  3. VITAMIN E [Concomitant]
     Active Substance: .ALPHA.-TOCOPHEROL
  4. TURMERIC [Concomitant]
     Active Substance: HERBALS\TURMERIC
  5. LIOTHYRONINE [Concomitant]
     Active Substance: LIOTHYRONINE
  6. CYCLOBENZAPRINE. [Concomitant]
     Active Substance: CYCLOBENZAPRINE
  7. VITAMIN D3 [Concomitant]
     Active Substance: CHOLECALCIFEROL
  8. GABAPENTIN. [Concomitant]
     Active Substance: GABAPENTIN
  9. ZYRTEC [Concomitant]
     Active Substance: CETIRIZINE HYDROCHLORIDE
  10. ALBUTEROL HFA [Concomitant]
     Active Substance: ALBUTEROL SULFATE
  11. CELECOXIB. [Concomitant]
     Active Substance: CELECOXIB
  12. ALLEGRA [Concomitant]
     Active Substance: FEXOFENADINE HYDROCHLORIDE
  13. LEVOTHYROXINE. [Concomitant]
     Active Substance: LEVOTHYROXINE
  14. EPIPEN [Concomitant]
     Active Substance: EPINEPHRINE
  15. FASLODEX [Concomitant]
     Active Substance: FULVESTRANT
  16. ACETAMINOPHEN?CODEINE [Concomitant]
     Active Substance: ACETAMINOPHEN\CODEINE PHOSPHATE
  17. DEXAMETHASONE. [Concomitant]
     Active Substance: DEXAMETHASONE

REACTIONS (4)
  - Swelling [None]
  - Swelling face [None]
  - Hypersensitivity [None]
  - Dermatitis acneiform [None]

NARRATIVE: CASE EVENT DATE: 20210128
